FAERS Safety Report 10890627 (Version 1)
Quarter: 2015Q1

REPORT INFORMATION
  Report Type: Spontaneous
  Country: IT (occurrence: IT)
  Receive Date: 20150305
  Receipt Date: 20150305
  Transmission Date: 20150721
  Serious: Yes (Hospitalization)
  Sender: FDA-Public Use
  Company Number: IT-TEVA-544255ACC

PATIENT
  Age: 85 Year
  Sex: Female

DRUGS (5)
  1. CARDIRENE - 75 MG POLVERE PER SOLUZIONE ORALE [Concomitant]
     Active Substance: ASPIRIN DL-LYSINE
     Indication: PRODUCT USED FOR UNKNOWN INDICATION
  2. CONGESCOR - 5 MG COMPRESSE [Concomitant]
     Active Substance: BISOPROLOL FUMARATE
     Indication: PRODUCT USED FOR UNKNOWN INDICATION
  3. AMLODIPINE BESYLATE. [Suspect]
     Active Substance: AMLODIPINE BESYLATE
     Indication: PRODUCT USED FOR UNKNOWN INDICATION
     Dosage: 5 MILLIGRAM DAILY;
     Route: 048
     Dates: start: 20140901, end: 20150222
  4. TRIATEC - 2.5 MG COMPRESSE - SANOFI S.P.A. [Suspect]
     Active Substance: RAMIPRIL
     Indication: HYPERTENSION
     Dosage: 1 DOSAGE FORMS DAILY;
     Route: 048
     Dates: start: 20090101, end: 20150222
  5. LASITONE - 25 MG + 37 MG CAPSULE RIGIDE - SANOFI S.P.A . [Suspect]
     Active Substance: FUROSEMIDE\SPIRONOLACTONE
     Indication: PRODUCT USED FOR UNKNOWN INDICATION
     Dosage: 1 DOSAGE FORMS DAILY; 1 DOSAGE FORM DAILY; (FUROSEMIDE 25 MG + SPIRONOLACTONE 37 MG)
     Route: 048
     Dates: start: 20150101, end: 20150222

REACTIONS (3)
  - Renal failure [Recovering/Resolving]
  - Syncope [Recovering/Resolving]
  - Orthostatic hypotension [Recovering/Resolving]

NARRATIVE: CASE EVENT DATE: 20150222
